FAERS Safety Report 21083914 (Version 1)
Quarter: 2022Q3

REPORT INFORMATION
  Report Type: Spontaneous
  Country: FR (occurrence: FR)
  Receive Date: 20220714
  Receipt Date: 20220714
  Transmission Date: 20221026
  Serious: No
  Sender: FDA-Public Use
  Company Number: FR-GW PHARMA-202111FRGW05766

PATIENT

DRUGS (1)
  1. CANNABIDIOL [Suspect]
     Active Substance: CANNABIDIOL
     Indication: Product used for unknown indication
     Dosage: UNK (DURATION 6-10 MONTHS)
     Route: 048

REACTIONS (2)
  - General physical health deterioration [Unknown]
  - Aggression [Unknown]
